FAERS Safety Report 4873997-3 (Version None)
Quarter: 2006Q1

REPORT INFORMATION
  Report Type: 
  Country: None (occurrence: None)
  Receive Date: 20060104
  Receipt Date: 20051222
  Transmission Date: 20060701
  Serious: Yes (Hospitalization)
  Sender: FDA-Public Use
  Company Number: 2005RR-01389

PATIENT
  Age: 75 Year
  Sex: Male

DRUGS (8)
  1. GABAPENTIN [Suspect]
     Indication: POST HERPETIC NEURALGIA
     Dosage: 800 MG QID
  2. FUROSEMIDE [Concomitant]
  3. CARVEDILOL [Concomitant]
  4. RAMIPRIL [Concomitant]
  5. ASPIRIN [Concomitant]
  6. ACYCLOVIR [Concomitant]
  7. ALBUTEROL [Concomitant]
  8. PANTOPRAZOLE [Concomitant]

REACTIONS (23)
  - ASTHENIA [None]
  - BLOOD LACTATE DEHYDROGENASE INCREASED [None]
  - BLOOD PHOSPHORUS INCREASED [None]
  - BLOOD POTASSIUM INCREASED [None]
  - BLOOD SODIUM DECREASED [None]
  - BLOOD UREA INCREASED [None]
  - BLOOD URIC ACID INCREASED [None]
  - COORDINATION ABNORMAL [None]
  - CREATININE RENAL CLEARANCE INCREASED [None]
  - FALL [None]
  - HAEMATOCRIT DECREASED [None]
  - HAEMOGLOBIN DECREASED [None]
  - HYPOTENSION [None]
  - MENTAL STATUS CHANGES [None]
  - MUCOSAL DRYNESS [None]
  - MUSCLE SPASMS [None]
  - MYOCLONUS [None]
  - NEPHROPATHY TOXIC [None]
  - PLATELET COUNT DECREASED [None]
  - PYREXIA [None]
  - SENSORY DISTURBANCE [None]
  - TREMOR [None]
  - WHITE BLOOD CELL COUNT INCREASED [None]
